FAERS Safety Report 5734962-7 (Version None)
Quarter: 2008Q2

REPORT INFORMATION
  Report Type: 
  Country: None (occurrence: None)
  Receive Date: 20080512
  Receipt Date: 20080507
  Transmission Date: 20081010
  Serious: Yes (Hospitalization, Other)
  Sender: FDA-Public Use
  Company Number: CA-BRISTOL-MYERS SQUIBB COMPANY-14081467

PATIENT
  Age: 60 Year
  Sex: Female

DRUGS (21)
  1. ORENCIA [Suspect]
     Indication: RHEUMATOID ARTHRITIS
     Dosage: 20NOV07,04DEC07,04JAN08,01FEB08. INFUSIONS-5, THERAPY DURATION-Q4
     Route: 042
     Dates: start: 20071106
  2. METHOTREXATE [Suspect]
     Dosage: TABLET FORMULATION.
     Route: 048
  3. DILANTIN [Concomitant]
  4. PLAVIX [Concomitant]
  5. INSULIN [Concomitant]
  6. ADALAT [Concomitant]
  7. LOPRESSOR [Concomitant]
  8. ACTONEL [Concomitant]
  9. LIPITOR [Concomitant]
  10. SYNTHROID [Concomitant]
  11. FOLIC ACID [Concomitant]
  12. PALAFER [Concomitant]
  13. NOVOSEMIDE [Concomitant]
  14. DOCUSATE SODIUM [Concomitant]
  15. ASPIRIN [Concomitant]
  16. IMDUR [Concomitant]
  17. CALCIUM [Concomitant]
  18. NITROGLYCERIN [Concomitant]
  19. VITAMIN B-12 [Concomitant]
     Dosage: FORM = INJECTION
  20. ARANESP [Concomitant]
     Dosage: FORM = INJECTIONS
  21. IRON [Concomitant]
     Dosage: FORM = INJECTION

REACTIONS (10)
  - ASTHENIA [None]
  - DEPRESSION [None]
  - ESCHERICHIA SEPSIS [None]
  - FALL [None]
  - FATIGUE [None]
  - MYOCARDIAL INFARCTION [None]
  - NEUTROPENIA [None]
  - RETCHING [None]
  - RIB FRACTURE [None]
  - WHITE BLOOD CELL COUNT DECREASED [None]
